FAERS Safety Report 14544191 (Version 1)
Quarter: 2018Q1

REPORT INFORMATION
  Report Type: Spontaneous
  Country: US (occurrence: US)
  Receive Date: 20180215
  Receipt Date: 20180215
  Transmission Date: 20180509
  Serious: Yes (Other)
  Sender: FDA-Public Use
  Company Number: None

PATIENT
  Age: 51 Year
  Sex: Female

DRUGS (1)
  1. STELARA [Suspect]
     Active Substance: USTEKINUMAB
     Indication: ARTHRITIS
     Dosage: 90MG EVERY 12 WEEKS SUBCUTANEOUSLY
     Route: 058
     Dates: start: 20171116

REACTIONS (3)
  - Headache [None]
  - Treatment noncompliance [None]
  - Insurance issue [None]

NARRATIVE: CASE EVENT DATE: 20171231
